FAERS Safety Report 6815030-X (Version None)
Quarter: 2010Q2

REPORT INFORMATION
  Report Type: 
  Country: None (occurrence: None)
  Receive Date: 20100629
  Receipt Date: 20100618
  Transmission Date: 20101027
  Serious: Yes (Other)
  Sender: FDA-Public Use
  Company Number: 7008651

PATIENT
  Sex: Male

DRUGS (3)
  1. REBIF [Suspect]
     Indication: RELAPSING-REMITTING MULTIPLE SCLEROSIS
     Dosage: 44 MCG, 3 IN 1 WK, SUBCUTANEOUS
     Route: 058
     Dates: start: 20040701
  2. ENALAPRIL MALEATE [Concomitant]
  3. METFORMIN HCL [Concomitant]

REACTIONS (2)
  - METASTASES TO LYMPH NODES [None]
  - METASTASES TO OESOPHAGUS [None]
